FAERS Safety Report 8283047-7 (Version None)
Quarter: 2012Q2

REPORT INFORMATION
  Report Type: 
  Country: None (occurrence: None)
  Receive Date: 20120413
  Receipt Date: 20120404
  Transmission Date: 20120825
  Serious: Yes (Other)
  Sender: FDA-Public Use
  Company Number: FR-ASTRAZENECA-2012SE22742

PATIENT
  Age: 49 Year
  Sex: Male

DRUGS (2)
  1. CRESTOR [Suspect]
     Indication: HYPERCHOLESTEROLAEMIA
     Route: 048
     Dates: start: 20111201
  2. CRESTOR [Suspect]
     Route: 048
     Dates: end: 20120326

REACTIONS (6)
  - ASTHENIA [None]
  - PANCREATITIS [None]
  - HYPERPHAGIA [None]
  - NAUSEA [None]
  - MYALGIA [None]
  - CYTOLYTIC HEPATITIS [None]
